FAERS Safety Report 11140066 (Version 1)
Quarter: 2015Q2

REPORT INFORMATION
  Report Type: Spontaneous
  Country: US (occurrence: US)
  Receive Date: 20150527
  Receipt Date: 20150527
  Transmission Date: 20150821
  Serious: No
  Sender: FDA-Public Use
  Company Number: US-ENDO PHARMACEUTICALS INC.-SPLN20140127

PATIENT
  Age: 10 Year
  Sex: Female
  Weight: 42.6 kg

DRUGS (1)
  1. SUPPRELIN LA [Suspect]
     Active Substance: HISTRELIN ACETATE
     Indication: PRECOCIOUS PUBERTY
     Route: 058
     Dates: start: 20140123

REACTIONS (5)
  - Implant site erythema [Recovered/Resolved]
  - Implant site infection [Recovered/Resolved]
  - Fluctuance [Recovered/Resolved]
  - Implant site swelling [Recovered/Resolved]
  - Implant site reaction [Recovered/Resolved]

NARRATIVE: CASE EVENT DATE: 20141219
